FAERS Safety Report 6616516-3 (Version None)
Quarter: 2010Q1

REPORT INFORMATION
  Report Type: 
  Country: None (occurrence: None)
  Receive Date: 20100305
  Receipt Date: 20100223
  Transmission Date: 20100710
  Serious: Yes (Other)
  Sender: FDA-Public Use
  Company Number: CHPA2010US04160

PATIENT
  Age: 80 Year
  Sex: Female

DRUGS (1)
  1. TRANSDERM SCOP [Suspect]
     Dosage: 1.5 MG, ONCE/SINGLE
     Route: 062

REACTIONS (2)
  - DEPRESSED LEVEL OF CONSCIOUSNESS [None]
  - MYDRIASIS [None]
